FAERS Safety Report 7427372-8 (Version None)
Quarter: 2011Q2

REPORT INFORMATION
  Report Type: 
  Country: None (occurrence: None)
  Receive Date: 20110420
  Receipt Date: 20110418
  Transmission Date: 20111010
  Serious: Yes (Hospitalization, Other)
  Sender: FDA-Public Use
  Company Number: DE-AMGEN-DEUSP2011008748

PATIENT
  Age: 72 Year
  Sex: Female
  Weight: 95 kg

DRUGS (4)
  1. NPLATE [Suspect]
  2. NPLATE [Suspect]
     Indication: IDIOPATHIC THROMBOCYTOPENIC PURPURA
     Dosage: 3 A?G/KG, QWK
     Route: 058
     Dates: start: 20110124
  3. INSULIN [Concomitant]
  4. DECORTIN [Concomitant]

REACTIONS (4)
  - PAIN IN EXTREMITY [None]
  - PULMONARY THROMBOSIS [None]
  - DEEP VEIN THROMBOSIS [None]
  - THROMBOCYTOSIS [None]
